FAERS Safety Report 19044337 (Version 4)
Quarter: 2022Q3

REPORT INFORMATION
  Report Type: Spontaneous
  Country: DE (occurrence: DE)
  Receive Date: 20210323
  Receipt Date: 20220701
  Transmission Date: 20221027
  Serious: Yes (Other)
  Sender: FDA-Public Use
  Company Number: DE-LUPIN PHARMACEUTICALS INC.-2021-03632

PATIENT
  Age: 33 Year
  Sex: Female

DRUGS (10)
  1. BETAMETHASONE [Suspect]
     Active Substance: BETAMETHASONE
     Indication: Product used for unknown indication
     Dosage: 24 MILLIGRAM (24MG OF BETAMETHASONE IN TWO SINGLE DOSES EVERY 24 HOURS)
     Route: 065
  2. POTASSIUM [Suspect]
     Active Substance: POTASSIUM
     Indication: Product used for unknown indication
     Dosage: UNK
     Route: 065
  3. CALCITONIN [Suspect]
     Active Substance: CALCITONIN
     Indication: Product used for unknown indication
     Dosage: 100 INTERNATIONAL UNIT, BID
     Route: 058
  4. FOLIC ACID [Suspect]
     Active Substance: FOLIC ACID
     Indication: Product used for unknown indication
     Dosage: UNK
     Route: 065
  5. PREDNISOLONE [Suspect]
     Active Substance: PREDNISOLONE
     Indication: Product used for unknown indication
     Dosage: 15 MILLIGRAM, QD
     Route: 065
  6. OCTREOTIDE [Suspect]
     Active Substance: OCTREOTIDE
     Indication: Diarrhoea
     Dosage: 100 MICROGRAM, BID
     Route: 058
  7. OCTREOTIDE [Suspect]
     Active Substance: OCTREOTIDE
     Dosage: 400 MICROGRAM, QD
     Route: 058
  8. OCTREOTIDE [Suspect]
     Active Substance: OCTREOTIDE
     Dosage: 800 MICROGRAM, QD
     Route: 058
  9. VITAMINS [Suspect]
     Active Substance: VITAMINS
     Indication: Vitamin supplementation
     Dosage: UNK
     Route: 065
  10. VITAMIN D [Suspect]
     Active Substance: VITAMIN D NOS
     Indication: Vitamin supplementation
     Dosage: UNK
     Route: 065

REACTIONS (2)
  - Maternal exposure during pregnancy [Unknown]
  - Premature delivery [Unknown]
